FAERS Safety Report 10051191 (Version 1)
Quarter: 2014Q2

REPORT INFORMATION
  Report Type: Spontaneous
  Country: CO (occurrence: CO)
  Receive Date: 20140401
  Receipt Date: 20140401
  Transmission Date: 20141212
  Serious: Yes (Other)
  Sender: FDA-Public Use
  Company Number: CO-PFIZER INC-2014091530

PATIENT
  Age: 49 Year
  Sex: Male

DRUGS (1)
  1. CARDURAN [Suspect]
     Indication: BENIGN PROSTATIC HYPERPLASIA
     Dosage: 4 MG, 1X/DAY
     Route: 048
     Dates: start: 201303, end: 20140326

REACTIONS (2)
  - Prostatic disorder [Recovering/Resolving]
  - Drug ineffective [Not Recovered/Not Resolved]
